FAERS Safety Report 7357053-0 (Version None)
Quarter: 2011Q1

REPORT INFORMATION
  Report Type: 
  Country: None (occurrence: None)
  Receive Date: 20110311
  Receipt Date: 20110311
  Transmission Date: 20110831
  Serious: Yes (Hospitalization)
  Sender: FDA-Public Use
  Company Number: None

PATIENT
  Sex: Male
  Weight: 111.6 kg

DRUGS (4)
  1. FLUOROURACIL [Suspect]
     Dosage: 19366 MG
     Dates: end: 20110304
  2. LEUCOVORIN CALCIUM [Suspect]
     Dosage: 2768 MG
     Dates: end: 20110302
  3. BEVACIZUMAB (RHUMAB VEGF) [Suspect]
     Dosage: 1701 MG
     Dates: end: 20110302
  4. OXALIPLATIN (ELOXATIN) [Suspect]
     Dosage: 2768 MG
     Dates: end: 20110302

REACTIONS (3)
  - NAUSEA [None]
  - JUGULAR VEIN THROMBOSIS [None]
  - VOMITING [None]
